FAERS Safety Report 5035528-7 (Version None)
Quarter: 2006Q2

REPORT INFORMATION
  Report Type: 
  Country: None (occurrence: None)
  Receive Date: 20060627
  Receipt Date: 20060616
  Transmission Date: 20061013
  Serious: Yes (Hospitalization)
  Sender: FDA-Public Use
  Company Number: PHRM2006FR01807

PATIENT
  Age: 6 Year
  Sex: Female
  Weight: 18 kg

DRUGS (4)
  1. SANDIMMUNE [Suspect]
     Indication: COLITIS
     Dosage: 37 MG, QD
     Dates: start: 20060503
  2. BACTRIM [Suspect]
     Dosage: 1 DF, QW3
     Route: 048
     Dates: start: 20060401
  3. CORTANCYL [Suspect]
     Indication: COLITIS
     Dosage: 35 MG, QD
     Route: 048
     Dates: start: 20060101
  4. IMUREL [Suspect]
     Indication: COLITIS
     Dosage: 50 MG, QD
     Dates: start: 20060428

REACTIONS (7)
  - ACUTE FEBRILE NEUTROPHILIC DERMATOSIS [None]
  - C-REACTIVE PROTEIN INCREASED [None]
  - INFLAMMATION [None]
  - LEUKOCYTOSIS [None]
  - NEUTROPHIL COUNT INCREASED [None]
  - PYREXIA [None]
  - RASH PAPULAR [None]
